FAERS Safety Report 6566401-0 (Version None)
Quarter: 2010Q1

REPORT INFORMATION
  Report Type: 
  Country: None (occurrence: None)
  Receive Date: 20100202
  Receipt Date: 20100129
  Transmission Date: 20100710
  Serious: Yes (Death)
  Sender: FDA-Public Use
  Company Number: JP-SANOFI-AVENTIS-200912397JP

PATIENT
  Age: 72 Year
  Sex: Male

DRUGS (3)
  1. DOCETAXEL [Suspect]
     Dosage: EVERY 4 WEEKS
     Route: 041
     Dates: start: 20071211, end: 20080226
  2. ESTRAMUSTINE [Concomitant]
     Route: 048
  3. PREDNISOLONE [Concomitant]
     Route: 048

REACTIONS (1)
  - INTERSTITIAL LUNG DISEASE [None]
